FAERS Safety Report 5725547-7 (Version None)
Quarter: 2008Q2

REPORT INFORMATION
  Report Type: 
  Country: None (occurrence: None)
  Receive Date: 20080501
  Receipt Date: 20080422
  Transmission Date: 20081010
  Serious: Yes (Disabling)
  Sender: FDA-Public Use
  Company Number: PHHY2008SI06274

PATIENT
  Age: 65 Year
  Sex: Female

DRUGS (1)
  1. EMSELEX EXTENDED RELEASE [Suspect]
     Indication: HYPERTONIC BLADDER
     Dosage: 7.5 MG, ONCE/SINGLE
     Route: 048
     Dates: start: 20060425, end: 20060507

REACTIONS (5)
  - DRY MOUTH [None]
  - DYSGEUSIA [None]
  - DYSPHAGIA [None]
  - MASTICATION DISORDER [None]
  - VISION BLURRED [None]
